FAERS Safety Report 14431516 (Version 2)
Quarter: 2018Q2

REPORT INFORMATION
  Report Type: Report from Study
  Country: CO (occurrence: CO)
  Receive Date: 20180124
  Receipt Date: 20180601
  Transmission Date: 20180711
  Serious: Yes (Hospitalization, Other)
  Sender: FDA-Public Use
  Company Number: CO-ASTELLAS-2017US035591

PATIENT
  Age: 35 Year
  Sex: Female
  Weight: 50 kg

DRUGS (2)
  1. TACROLIMUS. [Suspect]
     Active Substance: TACROLIMUS
     Indication: RENAL TRANSPLANT
     Dosage: 3 MG, ONCE DAILY (TOTAL DOSE 8 MG ONCE A DAY (ONE CAPSULE OF 5 MG AND THREE CAPSULES OF 1 MG)
     Route: 048
     Dates: start: 20150130
  2. TACROLIMUS. [Suspect]
     Active Substance: TACROLIMUS
     Indication: RENAL TRANSPLANT
     Dosage: 5 MG, ONCE DAILY (TOTAL DOSE 8 MG ONCE A DAY (ONE CAPSULE OF 5 MG AND THREE CAPSULES OF 1 MG)
     Route: 048
     Dates: start: 20150130

REACTIONS (3)
  - Kidney transplant rejection [Not Recovered/Not Resolved]
  - Product supply issue [Not Recovered/Not Resolved]
  - Chronic allograft nephropathy [Not Recovered/Not Resolved]

NARRATIVE: CASE EVENT DATE: 20170626
